FAERS Safety Report 6286147-6 (Version None)
Quarter: 2009Q3

REPORT INFORMATION
  Report Type: 
  Country: None (occurrence: None)
  Receive Date: 20090727
  Receipt Date: 20090720
  Transmission Date: 20100115
  Serious: Yes (Death, Life-Threatening, Hospitalization)
  Sender: FDA-Public Use
  Company Number: DL2009401

PATIENT
  Age: 29 Year
  Sex: Female
  Weight: 126.1 kg

DRUGS (2)
  1. MIFEPRISTONE TABLETS, 200 MG (DANCO LABS)? [Suspect]
     Indication: ABORTION INDUCED
     Dates: start: 20080813
  2. MISOPROSTOL [Suspect]
     Dates: start: 20080813

REACTIONS (6)
  - ABDOMINAL PAIN [None]
  - ENDOMETRITIS [None]
  - HAEMORRHAGE [None]
  - HYPOTENSION [None]
  - SEPSIS [None]
  - VOMITING [None]
